FAERS Safety Report 13469553 (Version 1)
Quarter: 2017Q2

REPORT INFORMATION
  Report Type: Other
  Country: GB (occurrence: PL)
  Receive Date: 20170421
  Receipt Date: 20170421
  Transmission Date: 20170830
  Serious: Yes (Death, Other)
  Sender: FDA-Public Use
  Company Number: PL-INTERNATIONAL MEDICATION SYSTEMS, LIMITED-1065691

PATIENT
  Age: 67 Year
  Sex: Male

DRUGS (15)
  1. VALPROIC ACID. [Concomitant]
     Active Substance: VALPROIC ACID
  2. TRAMADOL ER [Suspect]
     Active Substance: TRAMADOL HYDROCHLORIDE
     Route: 048
  3. INSULIN [Concomitant]
     Active Substance: INSULIN NOS
  4. METAMIZOLE [Concomitant]
     Active Substance: METAMIZOLE
  5. DEXAMETHASONE. [Concomitant]
     Active Substance: DEXAMETHASONE
     Route: 058
  6. TRIMETHOPRIM. [Concomitant]
     Active Substance: TRIMETHOPRIM
     Route: 048
  7. AMOXICILLIN, CLAVULANIC ACID [Concomitant]
     Active Substance: AMOXICILLIN\CLAVULANIC ACID
     Route: 048
  8. MORPHINE 0.5%. [Suspect]
     Active Substance: MORPHINE SULFATE
     Indication: PAIN
     Route: 048
  9. TRAMADOL, 50-75 MG IN DROPS [Suspect]
     Active Substance: TRAMADOL
     Route: 048
  10. CODEINE [Concomitant]
     Active Substance: CODEINE
  11. CIPROFLOXACIN. [Concomitant]
     Active Substance: CIPROFLOXACIN
     Route: 048
  12. TRAMADOL. [Suspect]
     Active Substance: TRAMADOL
     Route: 048
  13. MORPHINE [Suspect]
     Active Substance: MORPHINE
     Route: 048
  14. PAPAVERINE HYDROCHLORIDE. [Concomitant]
     Active Substance: PAPAVERINE HYDROCHLORIDE
  15. MORPHINE [Concomitant]
     Active Substance: MORPHINE

REACTIONS (4)
  - Chills [Recovered/Resolved]
  - Epilepsy [Unknown]
  - Hyperthermia [Recovered/Resolved]
  - Death [Fatal]

NARRATIVE: CASE EVENT DATE: 20121024
